FAERS Safety Report 15138443 (Version 2)
Quarter: 2018Q3

REPORT INFORMATION
  Report Type: Spontaneous
  Country: FR (occurrence: FR)
  Receive Date: 20180713
  Receipt Date: 20180713
  Transmission Date: 20181010
  Serious: Yes (Death)
  Sender: FDA-Public Use
  Company Number: FR-TEVA-2018-FR-921935

PATIENT
  Age: 53 Year
  Sex: Female

DRUGS (4)
  1. CYCLOSPORINE. [Suspect]
     Active Substance: CYCLOSPORINE
     Indication: IMMUNOSUPPRESSION
     Dosage: 800 MILLIGRAM DAILY; STARTED AT DAY 6?38 POST TRANSPLANTATION
     Route: 065
  2. PREDNISOLONE. [Suspect]
     Active Substance: PREDNISOLONE
     Indication: IMMUNOSUPPRESSION
     Dosage: 15 MILLIGRAM DAILY; STARTED AT DAY 6?38 POST TRANSPLANTATION
     Route: 065
  3. MYCOPHENOLATE MOFETIL. [Suspect]
     Active Substance: MYCOPHENOLATE MOFETIL
     Indication: IMMUNOSUPPRESSION
     Dosage: 500 MILLIGRAM DAILY; STARTED AT DAY 6 POST TRANSPLANTATION
     Route: 065
  4. BASILIXIMAB [Suspect]
     Active Substance: BASILIXIMAB
     Indication: IMMUNOSUPPRESSION
     Dosage: DAY 1?5 POST TRANSPLANTATION
     Route: 065

REACTIONS (6)
  - Human herpesvirus 6 infection [Fatal]
  - Multiple organ dysfunction syndrome [Fatal]
  - Septic shock [Fatal]
  - Diarrhoea [Fatal]
  - Encephalopathy [Fatal]
  - Cholangitis [Fatal]
